FAERS Safety Report 9858186 (Version 3)
Quarter: 2014Q1

REPORT INFORMATION
  Report Type: Report from Study
  Country: JP (occurrence: JP)
  Receive Date: 20140131
  Receipt Date: 20140303
  Transmission Date: 20141002
  Serious: No
  Sender: FDA-Public Use
  Company Number: JP-AMGEN-JPNCT2014006759

PATIENT
  Age: 78 Year
  Sex: Male
  Weight: 54 kg

DRUGS (3)
  1. DENOSUMAB [Suspect]
     Indication: METASTASES TO BONE
     Dosage: 120 MG/2012/12/20,2013/1/21,2/22,3/25,4/26,5/29,6/29,7/30
     Route: 058
     Dates: start: 20121220, end: 20130730
  2. GONAX [Concomitant]
     Dosage: UNKNOWN
     Route: 065
     Dates: start: 20121220
  3. BICALUTAMIDE [Concomitant]
     Dosage: UNKNOWN
     Route: 065
     Dates: start: 20121220

REACTIONS (1)
  - Dental caries [Recovered/Resolved]
